FAERS Safety Report 4302415-9 (Version None)
Quarter: 2004Q1

REPORT INFORMATION
  Report Type: 
  Country: None (occurrence: None)
  Receive Date: 20040220
  Receipt Date: 20040130
  Transmission Date: 20041129
  Serious: Yes (Life-Threatening, Hospitalization, Disabling)
  Sender: FDA-Public Use
  Company Number: F01200300809

PATIENT
  Age: 63 Year
  Sex: Male

DRUGS (10)
  1. (OXALIPLATIN) -  SOLUTION - 130 MG/M2 [Suspect]
     Indication: COLORECTAL CANCER
     Dosage: 130 MG/M2 Q3W, INTRAVENOUS NOS (2 HOURS - TIME TO ONSET: 2 WEEKS 3 DAYS
     Route: 042
     Dates: start: 20030717, end: 20030717
  2. (CAPECITABINE) - TABLET - 1000 MG/M2 [Suspect]
     Dosage: 1000 MG/M2 TWICE DAILY FROM D1 TO D15, Q3W; ORAL (2 WEEKS - TIME T ONSET: 2 WEEKS 3 DAYS)
     Route: 048
     Dates: start: 20030717, end: 20030730
  3. LISINOPRIL [Concomitant]
  4. METOPROLOL [Concomitant]
  5. MULTIVITAMIN [Concomitant]
  6. VITAMIN C [Concomitant]
  7. VITAMIN E [Concomitant]
  8. IMODIUM (LOPERAMIDE HCL) [Concomitant]
  9. LOPRESSOR [Concomitant]
  10. IRON [Concomitant]

REACTIONS (30)
  - ABDOMINAL ABSCESS [None]
  - ALPHA HAEMOLYTIC STREPTOCOCCAL INFECTION [None]
  - BLOOD GLUCOSE INCREASED [None]
  - BLOOD POTASSIUM DECREASED [None]
  - BLOOD POTASSIUM INCREASED [None]
  - BLOOD SODIUM DECREASED [None]
  - CANDIDIASIS [None]
  - COLORECTAL CANCER [None]
  - COMA [None]
  - COMPUTERISED TOMOGRAM ABNORMAL [None]
  - ENTEROBACTER INFECTION [None]
  - ESCHERICHIA INFECTION [None]
  - FUNGAL INFECTION [None]
  - HAEMODIALYSIS [None]
  - HAEMOGLOBIN DECREASED [None]
  - HYPOXIA [None]
  - INTESTINAL ANASTOMOTIC LEAK [None]
  - LEUKOPENIA [None]
  - LUNG CONSOLIDATION [None]
  - MALIGNANT NEOPLASM PROGRESSION [None]
  - METASTASES TO LIVER [None]
  - NEUTROPENIA [None]
  - OPERATIVE HAEMORRHAGE [None]
  - PLATELET COUNT DECREASED [None]
  - PLEURAL EFFUSION [None]
  - PNEUMATOSIS [None]
  - PROTEUS INFECTION [None]
  - RENAL FAILURE ACUTE [None]
  - SEPTIC SHOCK [None]
  - STAPHYLOCOCCAL INFECTION [None]
